FAERS Safety Report 9879006 (Version 2)
Quarter: 2014Q1

REPORT INFORMATION
  Report Type: Spontaneous
  Country: US (occurrence: US)
  Receive Date: 20140206
  Receipt Date: 20140206
  Transmission Date: 20141002
  Serious: No
  Sender: FDA-Public Use
  Company Number: US-ALLERGAN-1313088US

PATIENT
  Sex: Female

DRUGS (2)
  1. BOTOX [Suspect]
     Indication: MIGRAINE
     Dosage: UNK, SINGLE
     Route: 030
     Dates: start: 20130729, end: 20130729
  2. BOTOX [Suspect]
     Dosage: UNK
     Dates: start: 201303, end: 201303

REACTIONS (2)
  - Eyelid sensory disorder [Recovered/Resolved]
  - Neck pain [Recovered/Resolved]
